FAERS Safety Report 20325530 (Version 5)
Quarter: 2022Q3

REPORT INFORMATION
  Report Type: Report from Study
  Country: CA (occurrence: CA)
  Receive Date: 20220112
  Receipt Date: 20220822
  Transmission Date: 20221027
  Serious: Yes (Hospitalization)
  Sender: FDA-Public Use
  Company Number: CA-NOVARTISPH-NVSC2020CA117305

PATIENT
  Age: 80 Year
  Sex: Female

DRUGS (4)
  1. ERELZI [Suspect]
     Active Substance: ETANERCEPT-SZZS
     Indication: Rheumatoid arthritis
     Dosage: 50 MG, QW
     Route: 058
     Dates: start: 20200619
  2. ERELZI [Suspect]
     Active Substance: ETANERCEPT-SZZS
     Dosage: 50 MG, QW
     Route: 058
     Dates: start: 20220812
  3. CORTISONE [Concomitant]
     Active Substance: CORTISONE
     Indication: Product used for unknown indication
     Dosage: UNK, BID
     Route: 065
     Dates: start: 20200905, end: 20200914
  4. CORTISONE [Concomitant]
     Active Substance: CORTISONE
     Dosage: UNK (ONE AND HALF DAILY)
     Route: 065
     Dates: start: 20200915, end: 20200924

REACTIONS (21)
  - Syncope [Unknown]
  - COVID-19 [Recovered/Resolved]
  - Vomiting [Unknown]
  - Abdominal pain [Unknown]
  - Frequent bowel movements [Recovering/Resolving]
  - Pain in jaw [Unknown]
  - Eating disorder [Unknown]
  - General physical health deterioration [Unknown]
  - Facial pain [Unknown]
  - Toothache [Unknown]
  - Ear pain [Unknown]
  - Visual impairment [Unknown]
  - Sinusitis [Unknown]
  - Pain [Unknown]
  - Pain in extremity [Unknown]
  - Arthralgia [Unknown]
  - Back pain [Unknown]
  - Psoriasis [Unknown]
  - Injection site bruising [Unknown]
  - Drug ineffective [Unknown]
  - Wrong technique in product usage process [Unknown]

NARRATIVE: CASE EVENT DATE: 20211015
